FAERS Safety Report 5823505-5 (Version None)
Quarter: 2008Q3

REPORT INFORMATION
  Report Type: 
  Country: None (occurrence: None)
  Receive Date: 20080725
  Receipt Date: 20080717
  Transmission Date: 20090109
  Serious: Yes (Other)
  Sender: FDA-Public Use
  Company Number: US-ABBOTT-08P-163-0463422-00

PATIENT
  Sex: Female
  Weight: 73.548 kg

DRUGS (13)
  1. HUMIRA [Suspect]
     Indication: PSORIASIS
     Route: 058
     Dates: start: 20070501, end: 20071214
  2. HUMIRA [Suspect]
     Route: 058
     Dates: start: 20080501
  3. HYZAAR [Concomitant]
     Indication: BLOOD PRESSURE
     Dosage: 50-12.5 QD
     Route: 048
  4. NOHIST-+TAB [Concomitant]
     Indication: HYPERSENSITIVITY
     Dosage: 1/2 TAB BID
     Route: 048
  5. SERTRILINE [Concomitant]
     Indication: NERVOUSNESS
     Dosage: AT BEDTIME
     Route: 048
  6. CELECOXIB [Concomitant]
     Indication: ARTHRITIS
     Route: 048
  7. LANSOPRAZOLE [Concomitant]
     Indication: GASTRIC DISORDER
     Route: 048
  8. ACETYLSALICYLIC ACID SRT [Concomitant]
     Indication: CARDIAC DISORDER
     Route: 048
  9. ERGOCALCIFEROL [Concomitant]
     Indication: VITAMIN SUPPLEMENTATION
     Route: 048
  10. ALPRAZOLAM [Concomitant]
     Indication: ANXIETY
     Route: 048
  11. MUSCLE RELAXANTS [Concomitant]
     Indication: MUSCLE RELAXANT THERAPY
     Route: 048
  12. ZOLPIDEM TARTRATE [Concomitant]
     Indication: INSOMNIA
     Dosage: AT BEDTIME
     Route: 048
  13. HYDROCODONE BITARTRATE [Concomitant]
     Indication: PAIN
     Dosage: 7.5-500 MG
     Route: 048

REACTIONS (13)
  - BACK INJURY [None]
  - DYSPHAGIA [None]
  - EYE SWELLING [None]
  - FACIAL PAIN [None]
  - INTERVERTEBRAL DISC PROTRUSION [None]
  - NAUSEA [None]
  - SCOLIOSIS [None]
  - SINUSITIS [None]
  - SPONDYLOLISTHESIS [None]
  - SWELLING FACE [None]
  - TEMPORAL ARTERITIS [None]
  - UNEVALUABLE EVENT [None]
  - VOMITING [None]
